FAERS Safety Report 15626828 (Version 1)
Quarter: 2018Q4

REPORT INFORMATION
  Report Type: Spontaneous
  Country: US (occurrence: US)
  Receive Date: 20181112
  Receipt Date: 20181112
  Transmission Date: 20190205
  Serious: No
  Sender: FDA-Public Use
  Company Number: None

PATIENT
  Sex: Female

DRUGS (1)
  1. VERZENIO [Suspect]
     Active Substance: ABEMACICLIB
     Indication: BREAST CANCER FEMALE
     Route: 048
     Dates: start: 20181004, end: 20181010

REACTIONS (6)
  - Condition aggravated [None]
  - White blood cell count decreased [None]
  - Transfusion [None]
  - Platelet count decreased [None]
  - Drug effect increased [None]
  - Red blood cell count decreased [None]
